FAERS Safety Report 10102372 (Version 1)
Quarter: 2014Q2

REPORT INFORMATION
  Report Type: Spontaneous
  Country: BR (occurrence: None)
  Receive Date: 20140422
  Receipt Date: 20140422
  Transmission Date: 20141212
  Serious: Yes (Other)
  Sender: FDA-Public Use
  Company Number: VAL_03078_2014

PATIENT
  Sex: Female
  Weight: 108 kg

DRUGS (9)
  1. LOTENSIN HCT [Suspect]
     Indication: HYPERTENSION
     Dosage: 1 DF (10MG BENA/12.5MG HCT, AT NIGHT ORAL)
     Dates: start: 2000
  2. METFORMIN (METFORMIN) [Suspect]
     Indication: TYPE 2 DIABETES MELLITUS
     Dosage: DF
  3. DIAMICRON [Suspect]
     Indication: TYPE 2 DIABETES MELLITUS
     Dosage: 2 DF DAILY IN MORNING BREAKFAST
  4. GLIFAGE [Concomitant]
  5. JANUVIA [Concomitant]
  6. ROXFLAN [Concomitant]
  7. PURAN T4 [Concomitant]
  8. OMEPRAZOLE [Concomitant]
  9. CENTRUM PLUS [Concomitant]

REACTIONS (18)
  - Blood pressure increased [None]
  - Diarrhoea [None]
  - Osteoarthritis [None]
  - Calcinosis [None]
  - Blood cholesterol increased [None]
  - Blood uric acid increased [None]
  - Exostosis [None]
  - Gait disturbance [None]
  - Calculus bladder [None]
  - Yellow skin [None]
  - Arthralgia [None]
  - Economic problem [None]
  - Chondropathy [None]
  - Joint dislocation [None]
  - Pain [None]
  - Swelling [None]
  - Spinal pain [None]
  - Walking aid user [None]
